FAERS Safety Report 5845164-8 (Version None)
Quarter: 2008Q3

REPORT INFORMATION
  Report Type: 
  Country: None (occurrence: None)
  Receive Date: 20080814
  Receipt Date: 20080805
  Transmission Date: 20090109
  Serious: Yes (Other)
  Sender: FDA-Public Use
  Company Number: PHBS2008GR05341

PATIENT
  Age: 61 Year
  Sex: Male

DRUGS (7)
  1. ZOLEDRONIC ACID [Suspect]
     Indication: METASTASIS
     Dosage: UNK
  2. ANTIBIOTICS [Suspect]
     Route: 048
  3. RADIATION THERAPY [Concomitant]
     Indication: METASTASES TO SOFT TISSUE
  4. CETUXIMAB [Concomitant]
  5. IRINOTECAN HCL [Concomitant]
  6. DEXAMETHASONE TAB [Concomitant]
     Dosage: 6 MG
  7. OPIOID [Concomitant]

REACTIONS (24)
  - BACTERIA SPUTUM IDENTIFIED [None]
  - BLOOD UREA INCREASED [None]
  - BONE DISORDER [None]
  - C-REACTIVE PROTEIN INCREASED [None]
  - DYSPHAGIA [None]
  - ERYTHEMA [None]
  - ESCHERICHIA INFECTION [None]
  - GINGIVAL OPERATION [None]
  - HYPOALBUMINAEMIA [None]
  - INCISIONAL DRAINAGE [None]
  - INFLAMMATION [None]
  - LOCALISED INFECTION [None]
  - MOUTH ULCERATION [None]
  - MYOSITIS [None]
  - ORAL DISCOMFORT [None]
  - OSTEONECROSIS [None]
  - PAIN [None]
  - PAROTID GLAND ENLARGEMENT [None]
  - PURULENT DISCHARGE [None]
  - PYREXIA [None]
  - RED BLOOD CELL SEDIMENTATION RATE INCREASED [None]
  - SENSATION OF FOREIGN BODY [None]
  - SOFT TISSUE INFLAMMATION [None]
  - TRISMUS [None]
